FAERS Safety Report 7728232-5 (Version None)
Quarter: 2011Q3

REPORT INFORMATION
  Report Type: 
  Country: None (occurrence: None)
  Receive Date: 20110905
  Receipt Date: 20110826
  Transmission Date: 20111222
  Serious: Yes (Other)
  Sender: FDA-Public Use
  Company Number: PHEH2007US14501

PATIENT
  Sex: Male
  Weight: 90.703 kg

DRUGS (21)
  1. INTERFERON [Concomitant]
  2. AMIODARONE HCL [Concomitant]
  3. MEGACE [Concomitant]
     Dosage: 40 MG/ML,
  4. ATENOLOL ^ALIUD PHARMA^ [Concomitant]
     Dosage: 50 MG, QD
     Route: 048
  5. HYDROCHLOROTHIAZIDE [Concomitant]
     Dosage: 25 MG, QD
     Route: 048
  6. OXYCONTIN [Concomitant]
  7. FAMOTIDINE [Concomitant]
  8. FLOMAX [Concomitant]
     Dosage: 0.4 MG, QD
     Route: 048
  9. ZOMETA [Suspect]
     Dosage: 4 MG, Q28 DAYS
     Route: 042
     Dates: end: 20060424
  10. MS CONTIN [Concomitant]
     Dosage: 100 MG, Q12H
  11. SERTRALINE HYDROCHLORIDE [Concomitant]
     Dosage: 50 MG, QHS
     Route: 048
  12. ZOLPIDEM [Concomitant]
     Dosage: 5 MG, QHS
  13. NEXAVAR [Concomitant]
     Dosage: 200 MG, BID
  14. PERCOCET [Concomitant]
  15. ASPIRIN [Concomitant]
  16. SORAFENIB [Concomitant]
     Dates: start: 20060201
  17. PANTOPRAZOLE [Concomitant]
     Dosage: 40 MG, QD
     Route: 048
  18. GABAPENTIN [Concomitant]
     Dosage: 600 MG, BID
     Route: 048
  19. RADIATION THERAPY [Concomitant]
     Dates: start: 20080103, end: 20080211
  20. LEXAPRO [Concomitant]
     Dosage: 20 MG, QHS
     Route: 048
  21. METOCLOPRAMIDE [Concomitant]

REACTIONS (30)
  - TOOTH FRACTURE [None]
  - WEIGHT DECREASED [None]
  - OSTEONECROSIS OF JAW [None]
  - ANXIETY [None]
  - ANHEDONIA [None]
  - PYREXIA [None]
  - DECREASED APPETITE [None]
  - OSTEOPENIA [None]
  - MOUTH ULCERATION [None]
  - HYPOAESTHESIA [None]
  - INTERVERTEBRAL DISC DISORDER [None]
  - NEUTROPENIA [None]
  - AMNESIA [None]
  - METASTATIC RENAL CELL CARCINOMA [None]
  - INJURY [None]
  - ORAL DISORDER [None]
  - HEADACHE [None]
  - PAIN [None]
  - BONE DISORDER [None]
  - OSTEOMYELITIS ACUTE [None]
  - DIARRHOEA [None]
  - PALMAR-PLANTAR ERYTHRODYSAESTHESIA SYNDROME [None]
  - ORAL PAIN [None]
  - DENTAL CARIES [None]
  - LUMBAR SPINAL STENOSIS [None]
  - GINGIVAL ULCERATION [None]
  - GINGIVAL PAIN [None]
  - ANAEMIA [None]
  - FATIGUE [None]
  - CONSTIPATION [None]
